FAERS Safety Report 7659700-2 (Version None)
Quarter: 2011Q3

REPORT INFORMATION
  Report Type: 
  Country: None (occurrence: None)
  Receive Date: 20110805
  Receipt Date: 20100825
  Transmission Date: 20111222
  Serious: No
  Sender: FDA-Public Use
  Company Number: US-ABBOTT-10P-163-0667109-00

PATIENT
  Sex: Male

DRUGS (3)
  1. CELEXA [Concomitant]
     Indication: BIPOLAR DISORDER
     Dosage: NOT REPORTED
  2. DEPAKOTE ER [Suspect]
     Dates: start: 20070301, end: 20100101
  3. DEPAKOTE ER [Suspect]
     Indication: BIPOLAR DISORDER
     Dates: start: 20030101, end: 20040101

REACTIONS (4)
  - ABNORMAL BEHAVIOUR [None]
  - ANGER [None]
  - CHILD ABUSE [None]
  - SPOUSAL ABUSE [None]
